FAERS Safety Report 5327052-9 (Version None)
Quarter: 2007Q2

REPORT INFORMATION
  Report Type: 
  Country: None (occurrence: None)
  Receive Date: 20070517
  Receipt Date: 20070511
  Transmission Date: 20071010
  Serious: Yes (Other)
  Sender: FDA-Public Use
  Company Number: PHEH2007US07318

PATIENT
  Sex: Male

DRUGS (1)
  1. ZOMETA [Suspect]
     Indication: BONE DISORDER
     Dosage: MONTHLY
     Route: 042
     Dates: start: 20050101, end: 20070401

REACTIONS (2)
  - BRAIN NEOPLASM [None]
  - PAIN IN JAW [None]
